FAERS Safety Report 19420836 (Version 1)
Quarter: 2021Q2

REPORT INFORMATION
  Report Type: Spontaneous
  Country: US (occurrence: US)
  Receive Date: 20210615
  Receipt Date: 20210615
  Transmission Date: 20210717
  Serious: Yes (Other)
  Sender: FDA-Public Use
  Company Number: US-SA-2021SA198197

PATIENT
  Age: 73 Year
  Sex: Female
  Weight: 82.1 kg

DRUGS (18)
  1. BRILINTA [Suspect]
     Active Substance: TICAGRELOR
     Dosage: UNK
     Route: 065
  2. FUROSEMIDE. [Concomitant]
     Active Substance: FUROSEMIDE
     Dosage: UNK UNK, QD
     Route: 065
  3. MAGNESIUM [Concomitant]
     Active Substance: MAGNESIUM
     Dosage: UNK UNK, QD
     Route: 065
  4. CARVEDILOL. [Concomitant]
     Active Substance: CARVEDILOL
     Dosage: UNK UNK, Q12H
     Route: 065
  5. SUCRALFATE. [Concomitant]
     Active Substance: SUCRALFATE
     Indication: GASTROINTESTINAL DISORDER
     Dosage: UNK UNK, PRN
     Route: 065
  6. NEXIUM [Concomitant]
     Active Substance: ESOMEPRAZOLE MAGNESIUM
     Dosage: UNK UNK, QD
     Route: 065
  7. CALCITRIOL. [Concomitant]
     Active Substance: CALCITRIOL
     Dosage: UNK UNK, QD
     Route: 065
  8. ELIQUIS [Suspect]
     Active Substance: APIXABAN
     Indication: CEREBROVASCULAR ACCIDENT
     Dosage: 5 MG, Q12H
     Route: 048
  9. ALOPURINOL [Concomitant]
     Active Substance: ALLOPURINOL
     Dosage: UNK UNK, QD
     Route: 065
  10. ROSUVASTATIN. [Concomitant]
     Active Substance: ROSUVASTATIN
     Dosage: UNK UNK, QD
     Route: 065
  11. VITAMIN C [Concomitant]
     Active Substance: ASCORBIC ACID
     Dosage: UNK UNK, QD
     Route: 065
  12. MULTIVITAMINS [VITAMINS NOS] [Concomitant]
     Active Substance: VITAMINS
     Dosage: 1 DF, QD
     Route: 065
  13. SYNTHROID [Concomitant]
     Active Substance: LEVOTHYROXINE SODIUM
     Dosage: UNK
     Route: 065
     Dates: start: 1997
  14. CALCIUM [Concomitant]
     Active Substance: CALCIUM
     Dosage: UNK UNK, QD
     Route: 065
  15. PLAVIX [Suspect]
     Active Substance: CLOPIDOGREL BISULFATE
     Dosage: UNK
     Route: 065
  16. GLIPIZIDE. [Concomitant]
     Active Substance: GLIPIZIDE
     Dosage: UNK UNK, QD
     Route: 065
  17. POTASSIUM CHLORIDE. [Concomitant]
     Active Substance: POTASSIUM CHLORIDE
     Dosage: UNK UNK, QD
     Route: 065
  18. ZINC. [Concomitant]
     Active Substance: ZINC
     Dosage: 1 DF, QD
     Route: 065

REACTIONS (6)
  - Cerebrovascular accident [Unknown]
  - Hypersensitivity [Unknown]
  - Pain [Unknown]
  - Fibromyalgia [Unknown]
  - Gout [Unknown]
  - Inflammation [Unknown]
